FAERS Safety Report 10100302 (Version 1)
Quarter: 2014Q2

REPORT INFORMATION
  Report Type: Spontaneous
  Country: US (occurrence: US)
  Receive Date: 20140423
  Receipt Date: 20140423
  Transmission Date: 20141212
  Serious: No
  Sender: FDA-Public Use
  Company Number: US-ENDO PHARMACEUTICALS INC.-CLON20130021

PATIENT
  Age: 56 Year
  Sex: Female

DRUGS (1)
  1. CLONIDINE HCL TABLETS 0.1MG [Suspect]
     Indication: PRODUCT USED FOR UNKNOWN INDICATION
     Route: 048

REACTIONS (4)
  - Confusional state [Unknown]
  - Memory impairment [Unknown]
  - Dry eye [Unknown]
  - Lip dry [Unknown]
